FAERS Safety Report 6893186-0 (Version None)
Quarter: 2010Q3

REPORT INFORMATION
  Report Type: 
  Country: None (occurrence: None)
  Receive Date: 20100731
  Receipt Date: 20090624
  Transmission Date: 20110219
  Serious: No
  Sender: FDA-Public Use
  Company Number: US-PFIZER INC-2009232272

PATIENT
  Sex: Male

DRUGS (4)
  1. NORVASC [Suspect]
  2. GLIPIZIDE [Interacting]
  3. AVANDIA [Interacting]
  4. LISINOPRIL [Interacting]

REACTIONS (6)
  - BLOOD GLUCOSE INCREASED [None]
  - BONE DENSITY DECREASED [None]
  - DIZZINESS [None]
  - DRUG INTERACTION [None]
  - PERIODONTAL DISEASE [None]
  - TOOTH LOSS [None]
